FAERS Safety Report 22592968 (Version 2)
Quarter: 2023Q2

REPORT INFORMATION
  Report Type: Spontaneous
  Country: BR (occurrence: BR)
  Receive Date: 20230613
  Receipt Date: 20230623
  Transmission Date: 20230722
  Serious: No
  Sender: FDA-Public Use
  Company Number: BR-002147023-NVSC2023BR131699

PATIENT
  Sex: Male

DRUGS (2)
  1. HYRIMOZ [Suspect]
     Active Substance: ADALIMUMAB-ADAZ
     Indication: Uveitis
     Dosage: 2 DOSAGE FORM, 14D (SYRINGES) (2LISY BI BR)
     Route: 065
     Dates: start: 202301
  2. HYRIMOZ [Suspect]
     Active Substance: ADALIMUMAB-ADAZ
     Indication: Spondylitis
     Dosage: UNK (2LISY BI BR)
     Route: 065

REACTIONS (2)
  - Pain [Unknown]
  - Spondylitis [Unknown]
